FAERS Safety Report 6999079-2 (Version None)
Quarter: 2010Q3

REPORT INFORMATION
  Report Type: 
  Country: None (occurrence: None)
  Receive Date: 20100920
  Receipt Date: 20100907
  Transmission Date: 20110219
  Serious: Yes (Death, Hospitalization)
  Sender: FDA-Public Use
  Company Number: RU-NOVOPROD-314202

PATIENT
  Sex: Female
  Weight: 80 kg

DRUGS (2)
  1. NOVOMIX 30 FLEXPEN [Suspect]
     Indication: TYPE 2 DIABETES MELLITUS
     Dosage: 34 IU, QD
     Route: 058
     Dates: start: 20100517, end: 20100602
  2. ACTRAPID HM [Concomitant]
     Indication: HYPOGLYCAEMIA
     Dosage: 12 IU, QD
     Route: 058
     Dates: start: 20100517

REACTIONS (1)
  - ACUTE MYOCARDIAL INFARCTION [None]
